FAERS Safety Report 14118591 (Version 1)
Quarter: 2017Q4

REPORT INFORMATION
  Report Type: Spontaneous
  Country: US (occurrence: US)
  Receive Date: 20171023
  Receipt Date: 20171023
  Transmission Date: 20180321
  Serious: No
  Sender: FDA-Public Use
  Company Number: US-ALLERGAN-1711992US

PATIENT
  Age: 84 Year
  Sex: Female
  Weight: 61.22 kg

DRUGS (3)
  1. VITAMIN E [Concomitant]
     Active Substance: .ALPHA.-TOCOPHEROL
     Indication: BONE DISORDER
     Dosage: UNK
     Route: 048
  2. LINZESS [Suspect]
     Active Substance: LINACLOTIDE
     Indication: BOWEL MOVEMENT IRREGULARITY
     Dosage: 145 ?G, UNK
     Route: 048
     Dates: start: 201702
  3. RIVASTIGMINE. [Concomitant]
     Active Substance: RIVASTIGMINE
     Indication: MEMORY IMPAIRMENT
     Dosage: UNK UNK, BID
     Route: 048

REACTIONS (6)
  - Vomiting [Recovered/Resolved]
  - Off label use [Unknown]
  - Nausea [Not Recovered/Not Resolved]
  - Diarrhoea [Recovered/Resolved]
  - Bowel movement irregularity [Recovered/Resolved]
  - Constipation [Not Recovered/Not Resolved]
